FAERS Safety Report 13265966 (Version 2)
Quarter: 2017Q1

REPORT INFORMATION
  Report Type: Spontaneous
  Country: US (occurrence: US)
  Receive Date: 20170223
  Receipt Date: 20170306
  Transmission Date: 20170428
  Serious: Yes (Hospitalization)
  Sender: FDA-Public Use
  Company Number: US-UNITED THERAPEUTICS-UNT-2017-001788

PATIENT
  Age: 59 Year
  Sex: Female
  Weight: 42.63 kg

DRUGS (2)
  1. ORENITRAM [Suspect]
     Active Substance: TREPROSTINIL
     Indication: PULMONARY ARTERIAL HYPERTENSION
     Dosage: 0.25 MG, TID
     Route: 048
     Dates: start: 20170109
  2. ORENITRAM [Suspect]
     Active Substance: TREPROSTINIL
     Dosage: 0.375 MG, TID
     Route: 048

REACTIONS (3)
  - Cardiac failure congestive [Unknown]
  - Pulmonary oedema [Unknown]
  - Nasal congestion [Unknown]

NARRATIVE: CASE EVENT DATE: 201702
